FAERS Safety Report 21969321 (Version 1)
Quarter: 2023Q1

REPORT INFORMATION
  Report Type: Spontaneous
  Country: US (occurrence: US)
  Receive Date: 20230208
  Receipt Date: 20230208
  Transmission Date: 20230418
  Serious: Yes (Life-Threatening, Hospitalization, Other)
  Sender: FDA-Public Use
  Company Number: US-JUBILANT CADISTA PHARMACEUTICALS-2023JUB00051

PATIENT
  Age: 67 Year
  Sex: Female

DRUGS (1)
  1. AMLODIPINE [Suspect]
     Active Substance: AMLODIPINE BESYLATE
     Indication: Suicide attempt
     Dosage: OVERDOSE, (CUMULATIVE DOSE 150MG) 150 MG, TOTAL
     Route: 048

REACTIONS (3)
  - Intentional overdose [Recovered/Resolved]
  - Mental disorder [Recovered/Resolved]
  - Distributive shock [Recovered/Resolved]
